FAERS Safety Report 7491509-5 (Version None)
Quarter: 2011Q2

REPORT INFORMATION
  Report Type: 
  Country: None (occurrence: None)
  Receive Date: 20110519
  Receipt Date: 20110518
  Transmission Date: 20111010
  Serious: No
  Sender: FDA-Public Use
  Company Number: PHHY2010EE59156

PATIENT
  Age: 60 Year
  Sex: Female

DRUGS (4)
  1. RENITEC PLUS [Concomitant]
     Dosage: 20 MG, UNK
  2. NORVASC [Concomitant]
     Dosage: 10 MG, UNK
  3. ATORVASTATIN CALCIUM [Concomitant]
     Dosage: 5 MG, UNK
  4. TASIGNA [Suspect]
     Indication: CHRONIC MYELOID LEUKAEMIA
     Dosage: 400 MG, BID
     Dates: start: 20100618, end: 20100801

REACTIONS (4)
  - OEDEMA PERIPHERAL [None]
  - PYREXIA [None]
  - ERYTHEMA [None]
  - MALAISE [None]
